FAERS Safety Report 7997798-2 (Version None)
Quarter: 2011Q4

REPORT INFORMATION
  Report Type: 
  Country: None (occurrence: None)
  Receive Date: 20111221
  Receipt Date: 20111209
  Transmission Date: 20120403
  Serious: Yes (Other)
  Sender: FDA-Public Use
  Company Number: PHHY2011CA108128

PATIENT

DRUGS (5)
  1. ALISKIREN [Suspect]
     Dosage: 300 MG, UNK
  2. CALCIUM CHANNEL BLOCKERS [Concomitant]
  3. CRESTOR [Concomitant]
  4. METFORMIN HCL [Concomitant]
  5. BETA BLOCKING AGENTS [Concomitant]

REACTIONS (2)
  - DIABETES MELLITUS [None]
  - BLOOD PRESSURE INCREASED [None]
